FAERS Safety Report 9652821 (Version 1)
Quarter: 2013Q4

REPORT INFORMATION
  Report Type: Spontaneous
  Country: US (occurrence: US)
  Receive Date: 20131029
  Receipt Date: 20131029
  Transmission Date: 20140711
  Serious: No
  Sender: FDA-Public Use
  Company Number: US-009507513-1310USA013393

PATIENT
  Sex: Female

DRUGS (2)
  1. DR. SCHOLLS CALLUS REMOVERS [Suspect]
     Indication: HYPERKERATOSIS
     Dosage: UNK, UNKNOWN
     Route: 061
     Dates: start: 2013
  2. DR. SCHOLLS CALLUS REMOVERS [Suspect]
     Indication: PAIN

REACTIONS (1)
  - Therapeutic response decreased [Unknown]
